FAERS Safety Report 4945376-1 (Version None)
Quarter: 2006Q1

REPORT INFORMATION
  Report Type: 
  Country: None (occurrence: None)
  Receive Date: 20060315
  Receipt Date: 20060315
  Transmission Date: 20060701
  Serious: Yes (Hospitalization, Disabling)
  Sender: FDA-Public Use
  Company Number: None

PATIENT
  Age: 56 Year
  Sex: Male
  Weight: 138 kg

DRUGS (3)
  1. MORPHINE [Suspect]
  2. CLONAZEPAM [Suspect]
  3. VICODIN [Suspect]

REACTIONS (14)
  - ABDOMINAL PAIN [None]
  - BLADDER PAIN [None]
  - CHEST PAIN [None]
  - COUGH [None]
  - DISORIENTATION [None]
  - DIZZINESS [None]
  - DYSPNOEA [None]
  - HALLUCINATION [None]
  - HYPERSOMNIA [None]
  - MENTAL STATUS CHANGES [None]
  - MULTIPLE DRUG OVERDOSE [None]
  - PNEUMONIA [None]
  - PYREXIA [None]
  - TREATMENT NONCOMPLIANCE [None]
